FAERS Safety Report 10081531 (Version 1)
Quarter: 2014Q2

REPORT INFORMATION
  Report Type: Spontaneous
  Country: US (occurrence: None)
  Receive Date: 20140415
  Receipt Date: 20140415
  Transmission Date: 20141212
  Serious: Yes (Life-Threatening, Hospitalization, Disabling, Other)
  Sender: FDA-Public Use
  Company Number: None

PATIENT
  Age: 46 Year
  Sex: Male
  Weight: 79.38 kg

DRUGS (1)
  1. LEVAQUIN [Suspect]
     Indication: URINARY TRACT INFECTION
     Dates: start: 20101024, end: 20101029

REACTIONS (25)
  - Myalgia [None]
  - Muscle spasms [None]
  - Pruritus [None]
  - Tinnitus [None]
  - Hypoacusis [None]
  - Testicular pain [None]
  - Dry throat [None]
  - Dry mouth [None]
  - Asthenia [None]
  - Fatigue [None]
  - Laryngeal pain [None]
  - Nervousness [None]
  - Food allergy [None]
  - Dysphagia [None]
  - Muscle atrophy [None]
  - Decreased appetite [None]
  - Food intolerance [None]
  - Hair colour changes [None]
  - Coordination abnormal [None]
  - Dizziness [None]
  - Pain [None]
  - Sinusitis [None]
  - Stress [None]
  - Feeling abnormal [None]
  - Panic attack [None]
